FAERS Safety Report 9257895 (Version 1)
Quarter: 2013Q2

REPORT INFORMATION
  Report Type: Spontaneous
  Country: HU (occurrence: HU)
  Receive Date: 20130426
  Receipt Date: 20130426
  Transmission Date: 20140414
  Serious: Yes (Death)
  Sender: FDA-Public Use
  Company Number: HU-UCBSA-084249

PATIENT
  Sex: Male
  Weight: 50 kg

DRUGS (2)
  1. CIMZIA [Suspect]
     Indication: RHEUMATOID ARTHRITIS
     Route: 058
     Dates: start: 20110411, end: 20120801
  2. METOJECT [Concomitant]
     Indication: RHEUMATOID ARTHRITIS
     Route: 058

REACTIONS (5)
  - Cerebellar tumour [Fatal]
  - Haemorrhage intracranial [Fatal]
  - Hypertension [Unknown]
  - Urinary tract infection [Unknown]
  - Sepsis [Unknown]
